FAERS Safety Report 8569375-6 (Version None)
Quarter: 2012Q3

REPORT INFORMATION
  Report Type: 
  Country: None (occurrence: None)
  Receive Date: 20120803
  Receipt Date: 20120531
  Transmission Date: 20120928
  Serious: No
  Sender: FDA-Public Use
  Company Number: US-ABBOTT-12P-163-0941411-00

PATIENT
  Sex: Female
  Weight: 83.99 kg

DRUGS (4)
  1. EFFEXOR [Concomitant]
     Indication: HOT FLUSH
  2. FISH OIL [Concomitant]
     Indication: PRODUCT USED FOR UNKNOWN INDICATION
  3. NIASPAN [Suspect]
     Indication: BLOOD CHOLESTEROL INCREASED
  4. VITAMIN D [Concomitant]
     Indication: PRODUCT USED FOR UNKNOWN INDICATION

REACTIONS (5)
  - PRURITUS [None]
  - RASH MACULAR [None]
  - NAUSEA [None]
  - FLUSHING [None]
  - DIZZINESS [None]
